FAERS Safety Report 14309458 (Version 2)
Quarter: 2017Q4

REPORT INFORMATION
  Report Type: Spontaneous
  Country: ES (occurrence: ES)
  Receive Date: 20171220
  Receipt Date: 20171225
  Transmission Date: 20180321
  Serious: Yes (Other)
  Sender: FDA-Public Use
  Company Number: ES-TEVA-2017-ES-834942

PATIENT
  Age: 69 Year
  Sex: Male

DRUGS (3)
  1. QUETIAPINE. [Suspect]
     Active Substance: QUETIAPINE
     Indication: PRODUCT USED FOR UNKNOWN INDICATION
     Dosage: 50 MILLIGRAM DAILY; NO. OF UNITS PER INTERVAL: 24 - INTERVAL: HOUR; DRUG GIVEN AS MEDICATION ERROR
     Route: 048
     Dates: start: 20171024, end: 20171024
  2. RIVASTIGMINA [Interacting]
     Active Substance: RIVASTIGMINE TARTRATE
     Indication: PRODUCT USED FOR UNKNOWN INDICATION
     Dosage: 4500 MICROGRAM DAILY; NO. OF UNITS PER INTERVAL: 24 - INTERVAL: HOUR; DRUG GIVEN AS MEDICATION ERROR
     Route: 048
     Dates: start: 20171024, end: 20171024
  3. DUODART 0.5/0,4 MG CAPSULAS DURAS [Suspect]
     Active Substance: DUTASTERIDE\TAMSULOSIN
     Indication: PRODUCT USED FOR UNKNOWN INDICATION
     Dosage: 1 DOSAGE FORMS DAILY; NO. OF UNITS PER INTERVAL: 24 - INTERVAL: HOUR - 1 CADA 24 HORAS; DRUG GIVEN A
     Route: 048
     Dates: start: 20171024, end: 20171024

REACTIONS (4)
  - Drug dispensed to wrong patient [Recovered/Resolved]
  - Drug interaction [Recovered/Resolved]
  - Presyncope [Recovered/Resolved]
  - Hypotension [Recovered/Resolved]

NARRATIVE: CASE EVENT DATE: 20171024
